FAERS Safety Report 16950295 (Version 4)
Quarter: 2022Q2

REPORT INFORMATION
  Report Type: Spontaneous
  Country: US (occurrence: US)
  Receive Date: 20191023
  Receipt Date: 20220511
  Transmission Date: 20220721
  Serious: No
  Sender: FDA-Public Use
  Company Number: US-PFIZER INC-2019456796

PATIENT
  Age: 76 Year
  Sex: Female

DRUGS (1)
  1. XELJANZ XR [Suspect]
     Active Substance: TOFACITINIB CITRATE
     Dosage: 11 MG

REACTIONS (8)
  - Product dose omission issue [Unknown]
  - Arthropathy [Unknown]
  - Loss of personal independence in daily activities [Unknown]
  - Cough [Unknown]
  - Dry throat [Unknown]
  - Pain [Unknown]
  - Muscle tightness [Unknown]
  - Panic reaction [Unknown]
